FAERS Safety Report 10136780 (Version 1)
Quarter: 2014Q2

REPORT INFORMATION
  Report Type: Spontaneous
  Country: US (occurrence: US)
  Receive Date: 20140429
  Receipt Date: 20140429
  Transmission Date: 20141212
  Serious: No
  Sender: FDA-Public Use
  Company Number: US-MYLANLABS-2013S1021001

PATIENT
  Age: 72 Year
  Sex: Female
  Weight: 74.84 kg

DRUGS (5)
  1. IPRATROPIUM BROMIDE AND ALBUTEROL SULFATE INHALATION SOLUTION [Suspect]
     Indication: DYSPNOEA
     Dosage: REPORTED TO BE USED Q4-6 HOURS, AS NEEDED.
     Route: 055
     Dates: start: 20130821, end: 20130822
  2. IPRATROPIUM BROMIDE AND ALBUTEROL SULFATE INHALATION SOLUTION [Suspect]
     Indication: OFF LABEL USE
     Dosage: REPORTED TO BE USED Q4-6 HOURS, AS NEEDED.
     Route: 055
     Dates: start: 20130821, end: 20130822
  3. SYMBICORT [Concomitant]
     Indication: CHRONIC OBSTRUCTIVE PULMONARY DISEASE
     Dosage: 160/4.5UG
     Route: 055
  4. XANAX [Concomitant]
  5. ZYRTEC [Concomitant]
     Indication: HYPERSENSITIVITY
     Dosage: UNCERTAIN IF ZYRTEC WAS TAKEN ON 21-AUG-2013 AND 22-AUG-2013

REACTIONS (1)
  - Oropharyngeal pain [Recovered/Resolved]
